FAERS Safety Report 5672613-0 (Version None)
Quarter: 2008Q1

REPORT INFORMATION
  Report Type: 
  Country: None (occurrence: None)
  Receive Date: 20080319
  Receipt Date: 20080229
  Transmission Date: 20080703
  Serious: Yes (Other)
  Sender: FDA-Public Use
  Company Number: PHHY2008CA02600

PATIENT
  Sex: Male

DRUGS (1)
  1. GLEEVEC [Suspect]
     Indication: BLAST CRISIS IN MYELOGENOUS LEUKAEMIA

REACTIONS (1)
  - MALIGNANT NEOPLASM PROGRESSION [None]
